FAERS Safety Report 15157430 (Version 3)
Quarter: 2019Q3

REPORT INFORMATION
  Report Type: Spontaneous
  Country: RS (occurrence: RS)
  Receive Date: 20180718
  Receipt Date: 20190723
  Transmission Date: 20191004
  Serious: Yes (Death, Life-Threatening, Hospitalization, Other)
  Sender: FDA-Public Use
  Company Number: RS-009507513-1807SRB006625

PATIENT
  Age: 40 Year
  Sex: Female

DRUGS (1)
  1. KEYTRUDA [Suspect]
     Active Substance: PEMBROLIZUMAB
     Indication: NON-SMALL CELL LUNG CANCER
     Dosage: UNK, Q3W
     Route: 042
     Dates: start: 20180310, end: 20180625

REACTIONS (2)
  - Cardiac failure [Fatal]
  - Autoimmune myocarditis [Fatal]

NARRATIVE: CASE EVENT DATE: 201807
